FAERS Safety Report 18139751 (Version 1)
Quarter: 2020Q3

REPORT INFORMATION
  Report Type: Spontaneous
  Country: US (occurrence: US)
  Receive Date: 20200811
  Receipt Date: 20200811
  Transmission Date: 20201103
  Serious: Yes (Other)
  Sender: FDA-Public Use
  Company Number: None

PATIENT
  Age: 55 Year
  Sex: Male
  Weight: 78.3 kg

DRUGS (1)
  1. ZOSYN [Suspect]
     Active Substance: PIPERACILLIN SODIUM\TAZOBACTAM SODIUM
     Indication: CHOLECYSTITIS
     Dosage: ?          QUANTITY:2 INJECTION(S);?
     Route: 042
     Dates: start: 20200701, end: 20200702

REACTIONS (8)
  - Weight decreased [None]
  - Parosmia [None]
  - Breath odour [None]
  - Food intolerance [None]
  - Infusion related reaction [None]
  - Taste disorder [None]
  - Hypophagia [None]
  - Hypersensitivity [None]

NARRATIVE: CASE EVENT DATE: 20200701
